FAERS Safety Report 19431064 (Version 1)
Quarter: 2021Q2

REPORT INFORMATION
  Report Type: Spontaneous
  Country: US (occurrence: US)
  Receive Date: 20210618
  Receipt Date: 20210618
  Transmission Date: 20210717
  Serious: No
  Sender: FDA-Public Use
  Company Number: US-ROCHE-2744385

PATIENT
  Sex: Male

DRUGS (14)
  1. HYDROCORTANCYL [Concomitant]
     Active Substance: PREDNISONE
  2. APAP [Concomitant]
     Active Substance: ACETAMINOPHEN
  3. MELOXICAM. [Concomitant]
     Active Substance: MELOXICAM
  4. ACTEMRA [Suspect]
     Active Substance: TOCILIZUMAB
  5. DEXTROAMPHETAMINE. [Concomitant]
     Active Substance: DEXTROAMPHETAMINE
  6. SMZ?TMP DS [Concomitant]
     Active Substance: SULFAMETHOXAZOLE\TRIMETHOPRIM
  7. LEVOFLOXACIN. [Concomitant]
     Active Substance: LEVOFLOXACIN
  8. AMPHETAMINE [Concomitant]
     Active Substance: AMPHETAMINE
  9. CLINDAMYCIN. [Concomitant]
     Active Substance: CLINDAMYCIN
  10. TAMSULOSIN [Concomitant]
     Active Substance: TAMSULOSIN
  11. ACTEMRA [Suspect]
     Active Substance: TOCILIZUMAB
     Indication: BURSITIS
     Dosage: 162MG/0.9ML SYR
     Route: 058
     Dates: start: 20200520
  12. ACTEMRA [Suspect]
     Active Substance: TOCILIZUMAB
  13. TRIMETHOPRIM SULFAMETHOXAZOLE [Concomitant]
     Active Substance: SULFAMETHOXAZOLE\TRIMETHOPRIM
  14. PREDNISONE. [Concomitant]
     Active Substance: PREDNISONE

REACTIONS (3)
  - Off label use [Unknown]
  - No adverse event [Unknown]
  - Intentional product use issue [Unknown]
